FAERS Safety Report 23357180 (Version 3)
Quarter: 2024Q1

REPORT INFORMATION
  Report Type: Spontaneous
  Country: ES (occurrence: None)
  Receive Date: 20240102
  Receipt Date: 20240223
  Transmission Date: 20240410
  Serious: Yes (Other)
  Sender: FDA-Public Use
  Company Number: 2023A294847

PATIENT
  Age: 45 Year
  Sex: Female

DRUGS (1)
  1. SAPHNELO [Suspect]
     Active Substance: ANIFROLUMAB\ANIFROLUMAB-FNIA
     Indication: Chronic cutaneous lupus erythematosus
     Dates: start: 20230706

REACTIONS (2)
  - Hidradenitis [Unknown]
  - Off label use [Unknown]
